FAERS Safety Report 6859588-3 (Version None)
Quarter: 2010Q3

REPORT INFORMATION
  Report Type: 
  Country: None (occurrence: None)
  Receive Date: 20100719
  Receipt Date: 20080512
  Transmission Date: 20110219
  Serious: No
  Sender: FDA-Public Use
  Company Number: US-PFIZER INC-2008020599

PATIENT
  Sex: Female

DRUGS (5)
  1. CHANTIX [Suspect]
     Indication: SMOKING CESSATION THERAPY
     Route: 048
     Dates: start: 20080303
  2. TAMBOCOR [Concomitant]
  3. OXAZEPAM [Concomitant]
     Indication: ANXIETY
  4. LISINOPRIL [Concomitant]
     Indication: HYPERTENSION
  5. ESTRADIOL [Concomitant]

REACTIONS (9)
  - ABNORMAL DREAMS [None]
  - ARRHYTHMIA [None]
  - DRUG INEFFECTIVE [None]
  - FEELING ABNORMAL [None]
  - HEADACHE [None]
  - NAUSEA [None]
  - PALPITATIONS [None]
  - POOR QUALITY SLEEP [None]
  - TREMOR [None]
